FAERS Safety Report 4448632-9 (Version None)
Quarter: 2004Q3

REPORT INFORMATION
  Report Type: 
  Country: None (occurrence: None)
  Receive Date: 20040730
  Receipt Date: 20031202
  Transmission Date: 20050211
  Serious: Yes (Other)
  Sender: FDA-Public Use
  Company Number: 2003-12-0181

PATIENT
  Sex: Male

DRUGS (2)
  1. INTRON A [Suspect]
     Indication: KAPOSI'S SARCOMA
     Dosage: SEE IMAGE
     Route: 042
     Dates: end: 20031101
  2. INTRON A [Suspect]
     Indication: KAPOSI'S SARCOMA
     Dosage: SEE IMAGE
     Route: 042
     Dates: start: 19930101

REACTIONS (3)
  - BLINDNESS [None]
  - DISEASE PROGRESSION [None]
  - PAPILLOEDEMA [None]
